FAERS Safety Report 6689096-4 (Version None)
Quarter: 2010Q2

REPORT INFORMATION
  Report Type: 
  Country: None (occurrence: None)
  Receive Date: 20100415
  Receipt Date: 20100405
  Transmission Date: 20101027
  Serious: Yes (Other)
  Sender: FDA-Public Use
  Company Number: 2010SP019398

PATIENT
  Age: 69 Year
  Sex: Male

DRUGS (8)
  1. REMERON [Suspect]
     Indication: ANXIETY
     Dosage: 45 MG;QD;PO
     Route: 048
     Dates: start: 20100118, end: 20100311
  2. REMERON [Suspect]
     Indication: DEPRESSION
     Dosage: 45 MG;QD;PO
     Route: 048
     Dates: start: 20100118, end: 20100311
  3. PARIET (CON.) [Concomitant]
  4. OPALMON (CON.) [Concomitant]
  5. MUCOSTA (CON.) [Concomitant]
  6. MAGLAX (CON.) [Concomitant]
  7. BROTIZOLAM (CON.) [Concomitant]
  8. MYSLEE (CON.) [Concomitant]

REACTIONS (2)
  - ELECTROENCEPHALOGRAM ABNORMAL [None]
  - INFARCTION [None]
